FAERS Safety Report 22166554 (Version 1)
Quarter: 2023Q1

REPORT INFORMATION
  Report Type: Spontaneous
  Country: US (occurrence: None)
  Receive Date: 20230331
  Receipt Date: 20230331
  Transmission Date: 20230417
  Serious: No
  Sender: FDA-Public Use
  Company Number: None

PATIENT
  Sex: Male

DRUGS (1)
  1. HUMIRA [Suspect]
     Active Substance: ADALIMUMAB
     Indication: Crohn^s disease
     Dosage: OTHER QUANTITY : 40MG/0.4ML;?FREQUENCY : WEEKLY;?
     Route: 058
     Dates: start: 20230303

REACTIONS (3)
  - Crohn^s disease [None]
  - Pain [None]
  - Intestinal obstruction [None]
